FAERS Safety Report 10746928 (Version 1)
Quarter: 2015Q1

REPORT INFORMATION
  Report Type: Spontaneous
  Country: US (occurrence: US)
  Receive Date: 20150129
  Receipt Date: 20150129
  Transmission Date: 20150721
  Serious: Yes (Other)
  Sender: FDA-Public Use
  Company Number: US-ROCHE-1525831

PATIENT
  Age: 68 Year
  Sex: Female

DRUGS (10)
  1. DILTIAZEM [Concomitant]
     Active Substance: DILTIAZEM
  2. PROLIA [Concomitant]
     Active Substance: DENOSUMAB
  3. PERCOCET [Concomitant]
     Active Substance: ACETAMINOPHEN\OXYCODONE HYDROCHLORIDE
  4. PREDNISONE. [Concomitant]
     Active Substance: PREDNISONE
  5. DENOSUMAB [Concomitant]
     Active Substance: DENOSUMAB
  6. BENLYSTA [Suspect]
     Active Substance: BELIMUMAB
     Indication: SYSTEMIC LUPUS ERYTHEMATOSUS
     Route: 065
     Dates: start: 20140812
  7. RITUXAN [Suspect]
     Active Substance: RITUXIMAB
     Indication: PRODUCT USED FOR UNKNOWN INDICATION
     Route: 042
  8. PRILOSEC [Concomitant]
     Active Substance: OMEPRAZOLE MAGNESIUM
  9. VALIUM [Suspect]
     Active Substance: DIAZEPAM
     Indication: PRODUCT USED FOR UNKNOWN INDICATION
     Route: 048
  10. MEDROL [Concomitant]
     Active Substance: METHYLPREDNISOLONE
     Route: 065

REACTIONS (11)
  - Weight increased [Unknown]
  - Musculoskeletal pain [Unknown]
  - Decreased appetite [Unknown]
  - Walking aid user [Unknown]
  - Incontinence [Not Recovered/Not Resolved]
  - Arthralgia [Not Recovered/Not Resolved]
  - Night sweats [Not Recovered/Not Resolved]
  - Nausea [Not Recovered/Not Resolved]
  - Joint swelling [Unknown]
  - Systemic lupus erythematosus [Not Recovered/Not Resolved]
  - Pain [Unknown]

NARRATIVE: CASE EVENT DATE: 201410
